FAERS Safety Report 12732884 (Version 1)
Quarter: 2016Q3

REPORT INFORMATION
  Report Type: Spontaneous
  Country: US (occurrence: US)
  Receive Date: 20160910
  Receipt Date: 20160910
  Transmission Date: 20161109
  Serious: Yes (Other)
  Sender: FDA-Public Use
  Company Number: None

PATIENT
  Age: 61 Year
  Sex: Male
  Weight: 83.25 kg

DRUGS (3)
  1. ASPIRIN. [Concomitant]
     Active Substance: ASPIRIN
  2. ARMOUR THYROID [Concomitant]
     Active Substance: THYROID, PORCINE
  3. ATORVASTATIN CALCIUM TABLETS [Suspect]
     Active Substance: ATORVASTATIN CALCIUM
     Indication: MYOCARDIAL INFARCTION
     Dosage: 90 TABLETS DAILY ORAL
     Route: 048
     Dates: start: 20160801, end: 20160909

REACTIONS (5)
  - Insomnia [None]
  - Nausea [None]
  - Constipation [None]
  - Gastrooesophageal reflux disease [None]
  - Feeling abnormal [None]

NARRATIVE: CASE EVENT DATE: 20160909
